FAERS Safety Report 7611490-5 (Version None)
Quarter: 2011Q3

REPORT INFORMATION
  Report Type: 
  Country: None (occurrence: None)
  Receive Date: 20110715
  Receipt Date: 20110711
  Transmission Date: 20111222
  Serious: Yes (Hospitalization, Other)
  Sender: FDA-Public Use
  Company Number: DE-PFIZER INC-2011155475

PATIENT
  Age: 82 Year
  Sex: Female

DRUGS (3)
  1. IBUPROFEN [Suspect]
     Dosage: 600 MG, UNK
     Route: 048
     Dates: end: 20110323
  2. SIMVASTATIN [Concomitant]
     Dosage: 20 MG, UNK
     Route: 048
  3. MELPERONE [Suspect]
     Dosage: 20-50 MG
     Route: 048
     Dates: start: 20110316, end: 20110323

REACTIONS (3)
  - TRANSAMINASES INCREASED [None]
  - HEPATIC STEATOSIS [None]
  - CHOLELITHIASIS [None]
